FAERS Safety Report 8229319-3 (Version None)
Quarter: 2012Q1

REPORT INFORMATION
  Report Type: 
  Country: None (occurrence: None)
  Receive Date: 20120322
  Receipt Date: 20120228
  Transmission Date: 20120608
  Serious: Yes (Other)
  Sender: FDA-Public Use
  Company Number: CA-AMGEN-CANCT2012017140

PATIENT
  Age: 78 Year
  Sex: Female

DRUGS (3)
  1. PROLIA [Suspect]
     Indication: OSTEOPOROSIS
     Dosage: UNK
     Route: 030
     Dates: start: 20110701
  2. ZOSTER IMMUNOGLOBULIN [Suspect]
     Dosage: 50 MUG, UNK
     Dates: start: 20110117
  3. BLINDED VACCINE [Suspect]
     Dosage: UNK
     Route: 030
     Dates: start: 20110117, end: 20110325

REACTIONS (1)
  - CHRONIC LYMPHOCYTIC LEUKAEMIA [None]
